FAERS Safety Report 6864922-4 (Version None)
Quarter: 2010Q3

REPORT INFORMATION
  Report Type: 
  Country: None (occurrence: None)
  Receive Date: 20100721
  Receipt Date: 20080618
  Transmission Date: 20110219
  Serious: No
  Sender: FDA-Public Use
  Company Number: US-PFIZER INC-2008030888

PATIENT
  Sex: Female
  Weight: 47.7 kg

DRUGS (4)
  1. CHANTIX [Suspect]
     Indication: SMOKING CESSATION THERAPY
     Dates: start: 20060101
  2. AMBIEN [Concomitant]
  3. LISINOPRIL [Concomitant]
  4. DETROL LA [Concomitant]

REACTIONS (4)
  - DEPRESSION [None]
  - DYSGEUSIA [None]
  - ILL-DEFINED DISORDER [None]
  - MEMORY IMPAIRMENT [None]
